FAERS Safety Report 15626762 (Version 1)
Quarter: 2018Q4

REPORT INFORMATION
  Report Type: Report from Study
  Country: DE (occurrence: DE)
  Receive Date: 20181116
  Receipt Date: 20181116
  Transmission Date: 20190205
  Serious: Yes (Death, Other)
  Sender: FDA-Public Use
  Company Number: DE-ASTELLAS-2018US048614

PATIENT
  Age: 44 Year
  Sex: Male

DRUGS (43)
  1. AMPHOTERICIN B, LIPOSOME [Suspect]
     Active Substance: AMPHOTERICIN B
     Indication: SEPSIS
     Dosage: UNK UNK, UNKNOWN FREQ.
     Route: 042
     Dates: start: 20000912, end: 20000915
  2. TAVANIC [Suspect]
     Active Substance: LEVOFLOXACIN
     Dosage: UNK, UNKNOWN FREQ.
     Route: 042
     Dates: start: 20000903, end: 20000905
  3. ALPHAGLOBIN [Suspect]
     Active Substance: HUMAN IMMUNOGLOBULIN G
     Indication: PRODUCT USED FOR UNKNOWN INDICATION
     Dosage: UNK, UNKNOWN FREQ.
     Route: 042
     Dates: start: 20000909, end: 20000912
  4. BEN-U-RON [Suspect]
     Active Substance: ACETAMINOPHEN
     Indication: PAIN
     Dosage: UNK, UNKNOWN FREQ.
     Route: 048
     Dates: start: 20000904, end: 20000904
  5. DIFLUCAN [Suspect]
     Active Substance: FLUCONAZOLE
     Indication: FUNGAL INFECTION
     Route: 048
     Dates: start: 20000902, end: 20000916
  6. PIPRIL [Suspect]
     Active Substance: PIPERACILLIN SODIUM
     Indication: PNEUMONIA
     Route: 042
     Dates: start: 20000909, end: 20000911
  7. TUTOFUSIN B [Concomitant]
     Indication: PRODUCT USED FOR UNKNOWN INDICATION
     Dosage: UNK UNK, UNKNOWN FREQ.
     Route: 065
     Dates: start: 20000906, end: 20000917
  8. PREDNISOLON                        /00016201/ [Concomitant]
     Active Substance: PREDNISOLONE
     Indication: PRODUCT USED FOR UNKNOWN INDICATION
     Dosage: UNK UNK, UNKNOWN FREQ.
     Route: 065
     Dates: start: 20000915
  9. VANCOMYCIN [Concomitant]
     Active Substance: VANCOMYCIN
     Indication: PRODUCT USED FOR UNKNOWN INDICATION
     Dosage: UNK UNK, UNKNOWN FREQ.
     Route: 065
     Dates: start: 20000913
  10. FENTANYL. [Suspect]
     Active Substance: FENTANYL
     Indication: SEDATION
     Dosage: UNK, UNKNOWN FREQ.
     Route: 042
     Dates: start: 20000910
  11. MERONEM [Suspect]
     Active Substance: MEROPENEM
     Indication: SEPSIS
     Dosage: UNK, UNKNOWN FREQ.
     Route: 042
     Dates: start: 20000911, end: 20000914
  12. NOVALGIN (METAMIZOLE SODIUM) [Suspect]
     Active Substance: METAMIZOLE SODIUM
     Indication: PYREXIA
     Dosage: UNK, UNKNOWN FREQ.
     Route: 048
     Dates: start: 20000825, end: 20000828
  13. KALIUMCHLORID B. BRAUN [Concomitant]
     Indication: PRODUCT USED FOR UNKNOWN INDICATION
     Dosage: UNK UNK, UNKNOWN FREQ.
     Route: 065
     Dates: start: 20000825, end: 20000909
  14. VOLTAREN DOLO /00372303/ [Suspect]
     Active Substance: DICLOFENAC DIETHYLAMINE
     Indication: BACK PAIN
     Dosage: UNK, UNKNOWN FREQ.
     Route: 061
     Dates: start: 20000901, end: 20000902
  15. AREDIA [Suspect]
     Active Substance: PAMIDRONATE DISODIUM
     Indication: HYPERCALCAEMIA OF MALIGNANCY
     Dosage: UNK, UNKNOWN FREQ.
     Route: 042
     Dates: start: 20000909, end: 20000909
  16. FRAGMIN [Suspect]
     Active Substance: DALTEPARIN SODIUM
     Indication: THROMBOSIS
     Dosage: UNK UNK, UNKNOWN FREQ.
     Route: 058
     Dates: start: 20000902, end: 20000906
  17. NOCTAZEPAM [Suspect]
     Active Substance: OXAZEPAM
     Indication: SEDATION
     Dosage: UNK, UNKNOWN FREQ.
     Route: 048
     Dates: start: 20000828, end: 20000903
  18. VITAMINS NOS [Suspect]
     Active Substance: VITAMINS
     Indication: PRODUCT USED FOR UNKNOWN INDICATION
     Dosage: UNK, UNKNOWN FREQ.
     Route: 042
     Dates: start: 20000825, end: 20000829
  19. TAZOBAC [Suspect]
     Active Substance: PIPERACILLIN SODIUM\TAZOBACTAM SODIUM
     Indication: DIARRHOEA
     Dosage: UNK, UNKNOWN FREQ.
     Route: 042
     Dates: start: 20000824, end: 20000908
  20. UDICIL [Suspect]
     Active Substance: CYTARABINE
     Indication: LYMPHOMA
     Route: 037
     Dates: start: 20000913, end: 20000913
  21. IBUPROFEN. [Suspect]
     Active Substance: IBUPROFEN
     Indication: PAIN
     Dosage: UNK, UNKNOWN FREQ.
     Route: 048
     Dates: start: 20000905, end: 20000907
  22. KONAKION [Suspect]
     Active Substance: PHYTONADIONE
     Indication: HYPOKALAEMIA
     Dosage: UNK, UNKNOWN FREQ.
     Route: 042
     Dates: start: 20000825, end: 20000827
  23. GLUCOSE [Concomitant]
     Active Substance: DEXTROSE
     Indication: PRODUCT USED FOR UNKNOWN INDICATION
     Dosage: UNK UNK, UNKNOWN FREQ.
     Route: 065
     Dates: start: 20000823, end: 20000825
  24. AMPHO-MORONAL [Suspect]
     Active Substance: AMPHOTERICIN B
     Indication: FUNGAL INFECTION
     Dosage: UNK, UNKNOWN FREQ.
     Route: 065
     Dates: start: 20000909
  25. ANTRA                              /00661201/ [Suspect]
     Active Substance: OMEPRAZOLE
     Indication: PROPHYLAXIS
     Dosage: UNK, UNKNOWN FREQ.
     Route: 048
     Dates: start: 20000902, end: 20000909
  26. ARTERENOL [Suspect]
     Active Substance: NOREPINEPHRINE HYDROCHLORIDE, (+/-)-
     Indication: SEDATION
     Dosage: UNK, UNKNOWN FREQ.
     Route: 042
     Dates: start: 20000910
  27. BELOC                              /00376903/ [Suspect]
     Active Substance: METOPROLOL TARTRATE
     Indication: ARRHYTHMIA
     Route: 048
     Dates: start: 20000823
  28. COMBACTAM [Suspect]
     Active Substance: SULBACTAM SODIUM
     Indication: METASTASES TO LIVER
  29. LASIX [Suspect]
     Active Substance: FUROSEMIDE
     Indication: OEDEMA
     Dosage: UNK, UNKNOWN FREQ.
     Route: 042
     Dates: start: 20000824, end: 20000909
  30. COMBACTAM [Suspect]
     Active Substance: SULBACTAM SODIUM
     Indication: PNEUMONIA
     Route: 042
     Dates: start: 20000909, end: 20000912
  31. KALINOR                            /00031402/ [Suspect]
     Active Substance: POTASSIUM CHLORIDE
     Indication: HYPOKALAEMIA
     Route: 048
     Dates: start: 20000904, end: 20000906
  32. NUTRIFLEX                          /07403401/ [Suspect]
     Active Substance: AMINO ACIDS\CARBOHYDRATES\ELECTROLYTES NOS
     Indication: PRODUCT USED FOR UNKNOWN INDICATION
     Dosage: UNK, UNKNOWN FREQ.
     Route: 042
     Dates: start: 20000825, end: 20000829
  33. TAVANIC [Suspect]
     Active Substance: LEVOFLOXACIN
     Indication: DIARRHOEA
     Dosage: UNK UNK, UNKNOWN FREQ.
     Route: 042
     Dates: start: 20000825, end: 20000902
  34. VALDISPERT [Suspect]
     Active Substance: HERBALS
     Indication: SEDATION
     Dosage: UNK, UNKNOWN FREQ.
     Route: 048
     Dates: start: 20000823, end: 20000906
  35. ZYLORIC [Suspect]
     Active Substance: ALLOPURINOL
     Indication: HYPERURICAEMIA
     Route: 048
     Dates: start: 20000823, end: 20000831
  36. DEXAMETASON                        /00016001/ [Suspect]
     Active Substance: DEXAMETHASONE
     Indication: LYMPHOMA
     Dosage: UNK, UNKNOWN FREQ.
     Route: 037
     Dates: start: 20000913, end: 20000913
  37. HEPARIN [Suspect]
     Active Substance: HEPARIN SODIUM
     Indication: THROMBOSIS
     Dosage: UNK, UNKNOWN FREQ.
     Route: 042
     Dates: start: 20000823, end: 20000902
  38. LOPERAMIDE [Suspect]
     Active Substance: LOPERAMIDE
     Indication: DIARRHOEA
     Dosage: UNK, UNKNOWN FREQ.
     Route: 048
     Dates: start: 20000823, end: 20000825
  39. METHOTREXATE (METHOTREXATE SODIUM) [Suspect]
     Active Substance: METHOTREXATE SODIUM
     Indication: LYMPHOMA
     Dosage: UNK, UNKNOWN FREQ.
     Route: 037
     Dates: start: 20000913, end: 20000913
  40. NOCTAMID [Suspect]
     Active Substance: LORMETAZEPAM
     Indication: SLEEP DISORDER
     Dosage: UNK, UNKNOWN FREQ.
     Route: 048
     Dates: start: 20000823, end: 20000825
  41. SODIUM CHLORIDE. [Concomitant]
     Active Substance: SODIUM CHLORIDE
     Indication: PRODUCT USED FOR UNKNOWN INDICATION
     Dosage: UNK UNK, UNKNOWN FREQ.
     Route: 065
     Dates: start: 20000823, end: 20000909
  42. SODIUM BICARBONATE. [Concomitant]
     Active Substance: SODIUM BICARBONATE
     Indication: PRODUCT USED FOR UNKNOWN INDICATION
     Dosage: UNK UNK, UNKNOWN FREQ.
     Route: 065
     Dates: start: 20000823, end: 20000826
  43. BONDRONAT                          /01304701/ [Concomitant]
     Active Substance: IBANDRONATE SODIUM
     Indication: PRODUCT USED FOR UNKNOWN INDICATION
     Dosage: UNK UNK, UNKNOWN FREQ.
     Route: 065
     Dates: start: 20000822

REACTIONS (10)
  - Oral candidiasis [Fatal]
  - Scrotal ulcer [Fatal]
  - Rash generalised [Fatal]
  - Pneumonia [Fatal]
  - Gingival erosion [Fatal]
  - Stevens-Johnson syndrome [Fatal]
  - Blister [Fatal]
  - Conjunctivitis [Fatal]
  - Multiple organ dysfunction syndrome [Fatal]
  - Erythema [Fatal]

NARRATIVE: CASE EVENT DATE: 20000909
